FAERS Safety Report 8193165-X (Version None)
Quarter: 2012Q1

REPORT INFORMATION
  Report Type: 
  Country: None (occurrence: None)
  Receive Date: 20120222
  Receipt Date: 20110301
  Transmission Date: 20120608
  Serious: Yes (Other)
  Sender: FDA-Public Use
  Company Number: DSU-2011-01536

PATIENT
  Age: 65 Year
  Sex: Female
  Weight: 46.2669 kg

DRUGS (8)
  1. LORAZEPAM (LORAZEPAM) (TABLET) (LORAZEPAM) [Concomitant]
  2. RESTASIS [Suspect]
     Indication: GLAUCOMA
     Dosage: OPHTHALMIC
     Route: 047
  3. ZYRTEC (CETIRIZINE HYDROCHLORIDE) (TABLET) (CETIRIZINE HYDROCHLORIDE) [Concomitant]
  4. EVOXAC [Suspect]
     Indication: SJOGREN'S SYNDROME
     Dosage: 90 MG (30 MG,TID),PER ORAL ; 60 MG (30 MG,BID),PER ORAL
     Route: 048
     Dates: start: 20101201
  5. EVOXAC [Suspect]
     Indication: SJOGREN'S SYNDROME
     Dosage: 90 MG (30 MG,TID),PER ORAL ; 60 MG (30 MG,BID),PER ORAL
     Route: 048
     Dates: start: 20020408, end: 20101201
  6. I-FLORA PROBIOTIC (LACTOBACILLUS REUTERI) (LACTOBACILLUS REUTERI) [Concomitant]
  7. SERTRALINE (SERTRALINE) (TABLET) (SERTRALINE) [Concomitant]
  8. FIBER SUPPLEMENT (POLYCARBOPHIL CALCIUM) (POLYCARBOPHIL CALCIUM) [Concomitant]

REACTIONS (2)
  - EYE IRRITATION [None]
  - GLAUCOMA [None]
